FAERS Safety Report 5873649 (Version 3)
Quarter: 2018Q2

REPORT INFORMATION
  Report Type: Spontaneous
  Country: FR (occurrence: FR)
  Receive Date: 20050907
  Receipt Date: 20180614
  Transmission Date: 20180711
  Serious: Yes (Other)
  Sender: FDA-Public Use
  Company Number: PHBS2005FR12976

PATIENT
  Age: 60 Year
  Sex: Female

DRUGS (1)
  1. IMATINIB [Suspect]
     Active Substance: IMATINIB
     Indication: CHRONIC MYELOID LEUKAEMIA
     Dosage: 400 MG, QD
     Route: 065
     Dates: start: 200106, end: 200409

REACTIONS (3)
  - Rectal haemorrhage [Recovered/Resolved]
  - Second primary malignancy [Recovered/Resolved]
  - Adenocarcinoma of colon [Recovered/Resolved]
